FAERS Safety Report 6696264-4 (Version None)
Quarter: 2010Q2

REPORT INFORMATION
  Report Type: 
  Country: None (occurrence: None)
  Receive Date: 20100421
  Receipt Date: 20100406
  Transmission Date: 20101027
  Serious: Yes (Disabling, Other)
  Sender: FDA-Public Use
  Company Number: 2010AL002129

PATIENT
  Age: 45 Year
  Sex: Male

DRUGS (4)
  1. DICLOFENAC SODIUM [Suspect]
     Indication: PAIN
     Dates: start: 20100315
  2. ENBREL [Concomitant]
  3. ACETAMINOPHEN AND CODEINE PHOSPHATE [Concomitant]
  4. ACETAMINOPHEN AND CODEINE PHOSPHATE [Concomitant]

REACTIONS (9)
  - ACTIVITIES OF DAILY LIVING IMPAIRED [None]
  - ALANINE AMINOTRANSFERASE INCREASED [None]
  - BLOOD ALKALINE PHOSPHATASE INCREASED [None]
  - DEPRESSION SUICIDAL [None]
  - FIBROSIS [None]
  - GAMMA-GLUTAMYLTRANSFERASE INCREASED [None]
  - NEUTROPENIA [None]
  - RED BLOOD CELL SEDIMENTATION RATE INCREASED [None]
  - UNEMPLOYMENT [None]
